FAERS Safety Report 8134907-9 (Version None)
Quarter: 2012Q1

REPORT INFORMATION
  Report Type: 
  Country: None (occurrence: None)
  Receive Date: 20120210
  Receipt Date: 20120126
  Transmission Date: 20120608
  Serious: Yes (Other)
  Sender: FDA-Public Use
  Company Number: 2012S1000026

PATIENT
  Age: 2 Month
  Sex: Male

DRUGS (9)
  1. ALBUTEROL [Concomitant]
  2. CUROSURF [Concomitant]
  3. INOMAX [Suspect]
     Indication: PERSISTENT FOETAL CIRCULATION
     Dosage: 20 PPM;CONT;INH 10 PPM;CONT;INH 20 PPM;CONT;INH
     Route: 055
     Dates: start: 20120112, end: 20120122
  4. INOMAX [Suspect]
     Indication: PERSISTENT FOETAL CIRCULATION
     Dosage: 20 PPM;CONT;INH 10 PPM;CONT;INH 20 PPM;CONT;INH
     Route: 055
     Dates: start: 20120122, end: 20120125
  5. INOMAX [Suspect]
     Indication: PERSISTENT FOETAL CIRCULATION
     Dosage: 20 PPM;CONT;INH 10 PPM;CONT;INH 20 PPM;CONT;INH
     Route: 055
     Dates: start: 20120125
  6. EPINEPHRINE [Concomitant]
  7. CAFFEINE [Concomitant]
  8. INOMAX [Suspect]
     Indication: PERSISTENT FOETAL CIRCULATION
     Dates: start: 20120112
  9. VASOPRESSIN AND ANALOGUES [Concomitant]

REACTIONS (1)
  - OXYGEN SATURATION DECREASED [None]
